FAERS Safety Report 7535455-7 (Version None)
Quarter: 2011Q2

REPORT INFORMATION
  Report Type: 
  Country: None (occurrence: None)
  Receive Date: 20110609
  Receipt Date: 20080703
  Transmission Date: 20111010
  Serious: Yes (Hospitalization, Other)
  Sender: FDA-Public Use
  Company Number: PHHY2008BR08304

PATIENT
  Age: 63 Year
  Sex: Male

DRUGS (2)
  1. DIOVAN HCT [Suspect]
     Dosage: 1 DF, UNK
     Route: 048
     Dates: end: 20080426
  2. DIOVAN HCT [Suspect]
     Dosage: UNK
     Route: 048
     Dates: end: 20080426

REACTIONS (3)
  - MYOCARDIAL INFARCTION [None]
  - CATHETERISATION CARDIAC [None]
  - CHEST PAIN [None]
